FAERS Safety Report 8509301-9 (Version None)
Quarter: 2012Q3

REPORT INFORMATION
  Report Type: 
  Country: None (occurrence: None)
  Receive Date: 20120713
  Receipt Date: 20120629
  Transmission Date: 20120928
  Serious: Yes (Other)
  Sender: FDA-Public Use
  Company Number: PL-ROCHE-1083344

PATIENT
  Age: 77 Year
  Sex: Female

DRUGS (6)
  1. CAPECITABINE [Suspect]
     Indication: BREAST CANCER METASTATIC
     Route: 048
  2. CAPECITABINE [Suspect]
     Dosage: DOSE REDUCED TO 25%
  3. ASPIRIN [Concomitant]
  4. LAPATINIB [Suspect]
     Indication: BREAST CANCER METASTATIC
     Route: 048
  5. TRASTUZUMAB [Suspect]
     Indication: BREAST CANCER METASTATIC
  6. PACLITAXEL [Suspect]
     Indication: BREAST CANCER METASTATIC
     Dosage: ON DAYS 1, 8 AND 15, EVERY 28 DAYS
     Route: 042

REACTIONS (13)
  - PALMAR-PLANTAR ERYTHRODYSAESTHESIA SYNDROME [None]
  - PULMONARY EMBOLISM [None]
  - NAUSEA [None]
  - METASTASIS [None]
  - PLEURAL NEOPLASM [None]
  - BREAST CANCER METASTATIC [None]
  - CONJUNCTIVITIS [None]
  - ASTHENIA [None]
  - UPPER RESPIRATORY TRACT INFECTION [None]
  - NEOPLASM PROGRESSION [None]
  - DIARRHOEA [None]
  - MUCOSAL INFLAMMATION [None]
  - DEEP VEIN THROMBOSIS [None]
